FAERS Safety Report 6001666-5 (Version None)
Quarter: 2008Q4

REPORT INFORMATION
  Report Type: 
  Country: None (occurrence: None)
  Receive Date: 20081215
  Receipt Date: 20081210
  Transmission Date: 20090506
  Serious: Yes (Hospitalization)
  Sender: FDA-Public Use
  Company Number: US-B.I. PHARMACEUTICALS,INC./RIDGEFIELD-2004-BP-00629BP

PATIENT
  Age: 43 Year
  Sex: Female
  Weight: 66.7 kg

DRUGS (4)
  1. CATAPRES-TTS-1 [Suspect]
     Indication: HYPERTENSION
     Dosage: .4MG
     Route: 061
     Dates: start: 19970101, end: 20040101
  2. ADVAIR DISKUS 250/50 [Concomitant]
     Indication: ASTHMA
  3. SINGULAIR [Concomitant]
     Indication: ASTHMA
  4. ALBUTEROL [Concomitant]
     Route: 055

REACTIONS (10)
  - BRONCHOSPASM [None]
  - DERMATITIS ALLERGIC [None]
  - DIZZINESS [None]
  - DYSPNOEA [None]
  - GAIT DISTURBANCE [None]
  - HYPERSENSITIVITY [None]
  - NERVOUSNESS [None]
  - RASH [None]
  - SWELLING FACE [None]
  - VISION BLURRED [None]
